FAERS Safety Report 9445234 (Version 3)
Quarter: 2013Q3

REPORT INFORMATION
  Report Type: Spontaneous
  Country: DE (occurrence: None)
  Receive Date: 20130802
  Receipt Date: 20130905
  Transmission Date: 20140515
  Serious: Yes (Hospitalization)
  Sender: FDA-Public Use
  Company Number: SYM-2013-07760

PATIENT
  Age: 76 Year
  Sex: Male

DRUGS (11)
  1. 5-FU [Suspect]
     Indication: COLORECTAL CANCER METASTATIC
     Route: 040
     Dates: start: 20130603, end: 20130603
  2. IRINOTECAN [Suspect]
     Indication: COLORECTAL CANCER METASTATIC
     Dosage: 340 MG, EVERY OTHER WEEK INTRAVENOUS DRIP
     Route: 041
     Dates: start: 20130603, end: 20130603
  3. LEUCOVORIN [Suspect]
     Indication: COLORECTAL CANCER METASTATIC
     Route: 041
     Dates: start: 20130603, end: 20130603
  4. AFLIBERCEPT [Suspect]
     Indication: COLORECTAL CANCER METASTATIC
     Route: 041
     Dates: start: 20130603, end: 20130603
  5. ANTISEPTICS [Concomitant]
  6. ACE INHIBITOR NOS [Concomitant]
  7. BETA BLOCKING AGENTS [Concomitant]
  8. PLATELET AGGREGATION INHIBITORS [Concomitant]
  9. PROTON PUMP INHIBITORS [Concomitant]
  10. DIURETICS [Concomitant]
  11. HYPNOTICS AND SEDATIVES [Concomitant]

REACTIONS (1)
  - Neutropenia [None]
